FAERS Safety Report 6644457-4 (Version None)
Quarter: 2010Q1

REPORT INFORMATION
  Report Type: 
  Country: None (occurrence: None)
  Receive Date: 20100322
  Receipt Date: 20100310
  Transmission Date: 20100710
  Serious: Yes (Hospitalization, Other)
  Sender: FDA-Public Use
  Company Number: US-ROCHE-691774

PATIENT
  Age: 30 Year
  Sex: Male
  Weight: 86.2 kg

DRUGS (17)
  1. CLONAZEPAM [Suspect]
     Indication: DRUG USE FOR UNKNOWN INDICATION
     Route: 048
  2. DIAZEPAM [Suspect]
     Indication: DRUG USE FOR UNKNOWN INDICATION
     Route: 065
  3. CHANTIX [Suspect]
     Dosage: FORM: FILM COATED TABLET
     Route: 048
     Dates: start: 20080601
  4. CHANTIX [Suspect]
     Route: 048
  5. KEPPRA [Suspect]
     Route: 065
  6. KEPPRA [Suspect]
     Dosage: DOSE INCREASED
     Route: 065
  7. SOMA [Suspect]
     Route: 048
     Dates: end: 20090101
  8. NEURONTIN [Concomitant]
     Dates: start: 20080101
  9. XANAX [Concomitant]
     Dates: start: 19950101
  10. HYDROCODONE [Concomitant]
     Indication: PAIN
  11. AMITRIPTYLINE HCL [Concomitant]
  12. FIORICET W/ CODEINE [Concomitant]
     Indication: PAIN
  13. LYRICA [Concomitant]
     Dosage: 50 OR 75 MG
     Route: 048
  14. LYRICA [Concomitant]
     Dosage: ADDITIONAL INDICATION: NEUROPATHY
     Route: 048
     Dates: start: 20080101, end: 20100101
  15. DILANTIN [Concomitant]
  16. ALPRAZOLAM [Concomitant]
     Dates: start: 19951101
  17. ALPRAZOLAM [Concomitant]
     Dosage: 2-3 TIMES PER DAY

REACTIONS (11)
  - BALANCE DISORDER [None]
  - BRAIN INJURY [None]
  - CONVULSION [None]
  - DERMAL CYST [None]
  - FALL [None]
  - INSOMNIA [None]
  - MEMORY IMPAIRMENT [None]
  - NIGHTMARE [None]
  - RIB FRACTURE [None]
  - SOMNOLENCE [None]
  - WEIGHT INCREASED [None]
